FAERS Safety Report 22627401 (Version 1)
Quarter: 2023Q2

REPORT INFORMATION
  Report Type: Spontaneous
  Country: US (occurrence: US)
  Receive Date: 20230622
  Receipt Date: 20230622
  Transmission Date: 20230722
  Serious: No
  Sender: FDA-Public Use
  Company Number: US-ABBVIE-5298119

PATIENT
  Sex: Male

DRUGS (1)
  1. HUMIRA [Suspect]
     Active Substance: ADALIMUMAB
     Indication: Product used for unknown indication
     Dosage: START DATE TEXT: 1 YEAR
     Route: 058
     Dates: start: 2022

REACTIONS (3)
  - Muscular weakness [Unknown]
  - Fall [Unknown]
  - Joint range of motion decreased [Unknown]
